FAERS Safety Report 5926721-7 (Version None)
Quarter: 2008Q4

REPORT INFORMATION
  Report Type: 
  Country: None (occurrence: None)
  Receive Date: 20081017
  Receipt Date: 20080926
  Transmission Date: 20090506
  Serious: Yes (Hospitalization)
  Sender: FDA-Public Use
  Company Number: 6043870

PATIENT
  Age: 87 Year
  Sex: Female

DRUGS (16)
  1. CARDENSIEL 5 MG (5 MG, TABLET) (BISOPROLOL FUMARATE) [Suspect]
     Indication: ATRIAL FIBRILLATION
     Dosage: 5 MG (5 MG, 1 D), ORAL
     Route: 048
     Dates: end: 20080524
  2. DIGOXIN [Suspect]
     Indication: ATRIAL FIBRILLATION
     Dosage: 0.25 G (0.25 M, 1 D), ORAL
     Dates: end: 20080524
  3. FLECAINIDE ACETATE [Suspect]
     Indication: ATRIAL FIBRILLATION
     Dosage: 200 MG (200 MG, 1 D), ORAL
     Route: 048
     Dates: start: 20080522, end: 20080524
  4. NIFEDIPINE [Concomitant]
  5. RENITEC (ENALAPRIL) [Concomitant]
  6. LASIX [Concomitant]
  7. NITROGLYCERIN [Concomitant]
  8. PREVISCAN (FLUINDIONE) [Concomitant]
  9. POTASSIUM CHLORIDE [Concomitant]
  10. AERIOUS (DESLORATADINE) [Concomitant]
  11. FOLIC ACID [Concomitant]
  12. BECOTIDE (BELCOMETASONE DIPROPIONATE) [Concomitant]
  13. EUROBIOL (PANCREATIN) [Concomitant]
  14. DUPHALAC [Concomitant]
  15. DIANTALVIC (PARACETAMOL, DEXTROPROPOXYPHENE) [Concomitant]
  16. VOLTARENE EMULGEL(GEL) (DICLOFENAC) [Concomitant]

REACTIONS (7)
  - ATRIOVENTRICULAR BLOCK COMPLETE [None]
  - BRADYARRHYTHMIA [None]
  - BRADYCARDIA [None]
  - DRUG INTERACTION [None]
  - MALAISE [None]
  - OVERDOSE [None]
  - VERTIGO [None]
